FAERS Safety Report 16617221 (Version 1)
Quarter: 2019Q3

REPORT INFORMATION
  Report Type: Spontaneous
  Country: ES (occurrence: ES)
  Receive Date: 20190723
  Receipt Date: 20190723
  Transmission Date: 20191004
  Serious: Yes (Hospitalization)
  Sender: FDA-Public Use
  Company Number: ES-MYLANLABS-2019M1068169

PATIENT
  Age: 95 Year
  Sex: Female

DRUGS (12)
  1. FLUIDASA                           /00082801/ [Interacting]
     Active Substance: ACETYLCYSTEINE
     Indication: RESPIRATORY TRACT INFECTION
     Dosage: 5 MILLILITER, Q8H
     Route: 048
     Dates: start: 20190104, end: 20190110
  2. FUROSEMIDA                         /00032601/ [Concomitant]
     Active Substance: FUROSEMIDE
     Dosage: 40 MILLIGRAM, QD
     Route: 048
  3. PANTOPRAZOL                        /01263201/ [Concomitant]
     Active Substance: PANTOPRAZOLE
     Dosage: 40 MILLIGRAM, QD
     Route: 048
  4. FOSFOMICINA                        /00552501/ [Concomitant]
     Active Substance: FOSFOMYCIN
     Indication: RESPIRATORY TRACT INFECTION
     Dosage: 3 GRAM, QD
     Route: 048
     Dates: start: 20190109, end: 20190111
  5. VALSARTAN. [Concomitant]
     Active Substance: VALSARTAN
     Dosage: 40 MILLIGRAM, QD
     Route: 048
  6. VERSATIS [Concomitant]
     Active Substance: LIDOCAINE
     Indication: SCIATICA
     Dosage: UNK
     Route: 003
  7. TRAMADOL. [Suspect]
     Active Substance: TRAMADOL
     Indication: SCIATICA
     Dosage: 150 MILLIGRAM, BID
     Route: 048
     Dates: start: 20180308, end: 20190110
  8. LEVOFLOXACINO                      /01278901/ [Concomitant]
     Indication: RESPIRATORY TRACT INFECTION
     Dosage: 500 MILLIGRAM, QD
     Route: 048
     Dates: start: 20190104, end: 20190110
  9. LYRICA [Concomitant]
     Active Substance: PREGABALIN
     Dosage: 150 MILLIGRAM, BID
     Route: 048
  10. ATORVASTATINA                      /01326101/ [Concomitant]
     Active Substance: ATORVASTATIN
     Dosage: 10 MILLIGRAM, QD
     Route: 048
  11. METAMIZOL                          /06276701/ [Concomitant]
     Active Substance: METAMIZOLE
     Indication: SCIATICA
     Dosage: 575 MILLIGRAM, Q8H
     Route: 048
  12. PALEXIA [Interacting]
     Active Substance: TAPENTADOL HYDROCHLORIDE
     Indication: SCIATICA
     Dosage: 50 MILLIGRAM, BID
     Route: 048
     Dates: start: 20140626

REACTIONS (2)
  - Coma [Recovered/Resolved]
  - Drug interaction [Unknown]

NARRATIVE: CASE EVENT DATE: 20190110
